FAERS Safety Report 26063236 (Version 1)
Quarter: 2025Q4

REPORT INFORMATION
  Report Type: Spontaneous
  Country: US (occurrence: US)
  Receive Date: 20251119
  Receipt Date: 20251119
  Transmission Date: 20260117
  Serious: No
  Sender: LEO PHARM
  Company Number: US-LEO Pharma-384169

PATIENT
  Age: 54 Year
  Sex: Male

DRUGS (1)
  1. ADBRY [Suspect]
     Active Substance: TRALOKINUMAB-LDRM
     Indication: Eczema
     Dosage: ADBRY 300 MG PEN, INJECT 2 PENS SUBCUTANEOUS ON DAY 1 (ESTIMATE 10/15/25), THEN INJECT 1 PEN?EVERY 1
     Route: 058
     Dates: start: 20251015

REACTIONS (1)
  - Pruritus [Unknown]
